FAERS Safety Report 23869062 (Version 2)
Quarter: 2024Q2

REPORT INFORMATION
  Report Type: Spontaneous
  Country: US (occurrence: US)
  Receive Date: 20240517
  Receipt Date: 20240521
  Transmission Date: 20240716
  Serious: No
  Sender: FDA-Public Use
  Company Number: US-BIOGEN-2024BI01265269

PATIENT
  Age: 47 Year
  Sex: Male

DRUGS (1)
  1. VUMERITY [Suspect]
     Active Substance: DIROXIMEL FUMARATE
     Indication: Multiple sclerosis
     Route: 050
     Dates: start: 20230725

REACTIONS (3)
  - Depressed level of consciousness [Unknown]
  - Loss of control of legs [Unknown]
  - Akinesia [Unknown]

NARRATIVE: CASE EVENT DATE: 20240501
